FAERS Safety Report 11661289 (Version 1)
Quarter: 2015Q4

REPORT INFORMATION
  Report Type: Spontaneous
  Country: IT (occurrence: IT)
  Receive Date: 20151026
  Receipt Date: 20151026
  Transmission Date: 20160304
  Serious: Yes (Hospitalization)
  Sender: FDA-Public Use
  Company Number: IT-IPCA LABORATORIES LIMITED-IPC201510-000702

PATIENT
  Age: 4 Year
  Sex: Male

DRUGS (5)
  1. FUROSEMIDE. [Suspect]
     Active Substance: FUROSEMIDE
  2. PROGESTERONE. [Suspect]
     Active Substance: PROGESTERONE
  3. INSULIN [Suspect]
     Active Substance: INSULIN NOS
  4. GLYBURIDE. [Suspect]
     Active Substance: GLYBURIDE
  5. VALPROATE [Concomitant]
     Active Substance: VALPROATE SODIUM

REACTIONS (8)
  - Metabolic alkalosis [Recovered/Resolved]
  - Hypokalaemia [Recovered/Resolved]
  - Hyperglycaemia [Recovered/Resolved]
  - Hirsutism [Recovered/Resolved]
  - Hypoglycaemia [Recovered/Resolved]
  - Drug administration error [Unknown]
  - Sepsis [Recovered/Resolved]
  - Nephrocalcinosis [Unknown]
